FAERS Safety Report 10111054 (Version 1)
Quarter: 2014Q2

REPORT INFORMATION
  Report Type: Spontaneous
  Country: US (occurrence: None)
  Receive Date: 20140424
  Receipt Date: 20140424
  Transmission Date: 20141212
  Serious: Yes (Other)
  Sender: FDA-Public Use
  Company Number: None

PATIENT
  Age: 79 Year
  Sex: Female
  Weight: 75.75 kg

DRUGS (11)
  1. MULTAQ [Suspect]
     Indication: DYSPNOEA
     Route: 048
     Dates: start: 20140203, end: 20140208
  2. HYDROCHLOROTHIAZIDE [Concomitant]
  3. ATORVASTATIN [Concomitant]
  4. CARVEDILOL [Concomitant]
  5. ACCUCHECK AVIVA [Concomitant]
  6. ASPIRIN [Concomitant]
  7. LOW DOSE [Concomitant]
  8. XARELTO [Concomitant]
  9. GLUCOPHAGE [Concomitant]
  10. MAGNESIUM OXIDE [Concomitant]
  11. VITAMIN D [Concomitant]

REACTIONS (2)
  - Dyspnoea exertional [None]
  - Condition aggravated [None]
